FAERS Safety Report 8591362-2 (Version None)
Quarter: 2012Q3

REPORT INFORMATION
  Report Type: 
  Country: None (occurrence: None)
  Receive Date: 20120730
  Receipt Date: 20120718
  Transmission Date: 20120928
  Serious: Yes (Other)
  Sender: FDA-Public Use
  Company Number: 2012PROUSA01526

PATIENT
  Age: 76 Year
  Sex: Male
  Weight: 62.5 kg

DRUGS (1)
  1. PROVENGE [Suspect]
     Indication: PROSTATE CANCER METASTATIC
     Dosage: 250 ML, SINGLE, INTRAVENOUS
     Route: 042
     Dates: start: 20120406, end: 20120406

REACTIONS (6)
  - MALAISE [None]
  - ASTHENIA [None]
  - INFUSION RELATED REACTION [None]
  - OXYGEN SATURATION DECREASED [None]
  - DYSPNOEA [None]
  - WEIGHT DECREASED [None]
